FAERS Safety Report 7656298-X (Version None)
Quarter: 2011Q3

REPORT INFORMATION
  Report Type: 
  Country: None (occurrence: None)
  Receive Date: 20110729
  Receipt Date: 20110718
  Transmission Date: 20111222
  Serious: Yes (Other)
  Sender: FDA-Public Use
  Company Number: AUR-APL-2011-04390

PATIENT
  Sex: Female

DRUGS (1)
  1. VENLAFAXINE [Suspect]
     Indication: PRODUCT USED FOR UNKNOWN INDICATION
     Dosage: 4 DOSAGE FORMS, 1 D;

REACTIONS (4)
  - UNEVALUABLE EVENT [None]
  - PRODUCT DOSAGE FORM ISSUE [None]
  - PRODUCT COLOUR ISSUE [None]
  - INCORRECT DOSE ADMINISTERED [None]
